FAERS Safety Report 23967641 (Version 1)
Quarter: 2024Q2

REPORT INFORMATION
  Report Type: Spontaneous
  Country: US (occurrence: US)
  Receive Date: 20240612
  Receipt Date: 20240612
  Transmission Date: 20240716
  Serious: No
  Sender: FDA-Public Use
  Company Number: US-SA-SAC20240606000961

PATIENT
  Age: 57 Year
  Sex: Female
  Weight: 124.7 kg

DRUGS (1)
  1. DUPIXENT [Suspect]
     Active Substance: DUPILUMAB
     Indication: Asthma
     Dosage: 4 ML, 1X
     Route: 058
     Dates: start: 20240530, end: 20240530

REACTIONS (4)
  - Fatigue [Recovered/Resolved]
  - Back pain [Recovered/Resolved]
  - Myalgia [Recovered/Resolved]
  - Arthralgia [Recovered/Resolved]

NARRATIVE: CASE EVENT DATE: 20240601
